FAERS Safety Report 12536217 (Version 1)
Quarter: 2016Q3

REPORT INFORMATION
  Report Type: Spontaneous
  Country: BR (occurrence: BR)
  Receive Date: 20160707
  Receipt Date: 20160707
  Transmission Date: 20161109
  Serious: Yes (Other)
  Sender: FDA-Public Use
  Company Number: BR-GLAXOSMITHKLINE-BR2016GSK094884

PATIENT
  Sex: Female
  Weight: 60 kg

DRUGS (2)
  1. AVAMYS [Suspect]
     Active Substance: FLUTICASONE FUROATE
     Indication: RHINITIS
     Dosage: 2 DF, BID
     Route: 045
  2. CETIRIZINE HYDROCHLORIDE. [Concomitant]
     Active Substance: CETIRIZINE HYDROCHLORIDE
     Indication: RHINITIS
     Dosage: 1 DF, QD
     Route: 048

REACTIONS (6)
  - Bronchitis [Unknown]
  - Product availability issue [Unknown]
  - Pneumonia [Unknown]
  - Overdose [Unknown]
  - Eye pain [Recovered/Resolved]
  - Nasal congestion [Recovered/Resolved]
